FAERS Safety Report 8759196 (Version 1)
Quarter: 2012Q4

REPORT INFORMATION
  Report Type: 
  Country: US (occurrence: US)
  Receive Date: 20120829
  Receipt Date: 20120829
  Transmission Date: 20130627
  Serious: Yes (Hospitalization)
  Sender: FDA-Public Use
  Company Number: US-BAYER-2012-088935

PATIENT
  Age: 38 Year
  Sex: Female
  Weight: 120 kg

DRUGS (9)
  1. YAZ [Suspect]
  2. AXERT [Concomitant]
  3. CYMBALTA [Concomitant]
  4. AMITIZA [Concomitant]
  5. LYRICA [Concomitant]
  6. PROTONIX [Concomitant]
  7. SYNTHROID [Concomitant]
  8. TOPAMAX [Concomitant]
  9. XANAX [Concomitant]

REACTIONS (1)
  - Pulmonary embolism [None]
